FAERS Safety Report 4854426-2 (Version None)
Quarter: 2005Q4

REPORT INFORMATION
  Report Type: 
  Country: None (occurrence: None)
  Receive Date: 20051215
  Receipt Date: 20051011
  Transmission Date: 20060501
  Serious: Yes (Other)
  Sender: FDA-Public Use
  Company Number: 2005UW16945

PATIENT
  Age: 65 Year
  Sex: Female

DRUGS (5)
  1. NEXIUM [Suspect]
     Indication: DYSPEPSIA
     Route: 048
     Dates: start: 20041201, end: 20050901
  2. OXAZEPAM [Concomitant]
     Route: 048
  3. NORVASC [Concomitant]
     Route: 048
  4. DUOLUBE [Concomitant]
  5. REFRESH [Concomitant]

REACTIONS (1)
  - DRY EYE [None]
